FAERS Safety Report 9324068 (Version 2)
Quarter: 2013Q3

REPORT INFORMATION
  Report Type: Spontaneous
  Country: FR (occurrence: FR)
  Receive Date: 20130603
  Receipt Date: 20130710
  Transmission Date: 20140515
  Serious: Yes (Hospitalization, Other)
  Sender: FDA-Public Use
  Company Number: FR-PFIZER INC-2013163748

PATIENT
  Age: 62 Year
  Sex: Male

DRUGS (11)
  1. LYRICA [Suspect]
     Dosage: 25 MG, 1X/DAY
     Route: 048
     Dates: start: 201210
  2. AOTAL [Suspect]
     Indication: ALCOHOL ABUSE
     Dosage: 333 MG, 2X/DAY
     Route: 048
     Dates: start: 201301, end: 20130328
  3. EUCREAS [Concomitant]
     Dosage: 2 DF, 1X/DAY
     Route: 048
     Dates: start: 201210
  4. LASILIX [Concomitant]
     Dosage: 40 MG, 1X/DAY
     Route: 048
  5. TRIATEC [Concomitant]
     Dosage: 10 MG, 1X/DAY
     Route: 048
  6. PREVISCAN [Concomitant]
     Dosage: 0.5 TABLET
  7. DETENSIEL [Concomitant]
     Dosage: 1 DF, 1X/DAY
  8. NOVONORM [Concomitant]
     Dosage: 3 DF, 1X/DAY
  9. SERESTA [Concomitant]
     Dosage: 2 DF, 1X/DAY
  10. DEFANYL [Concomitant]
     Dosage: 1 DF, 1X/DAY
  11. ANAFRANIL [Concomitant]
     Dosage: 25 MG, 1X/DAY

REACTIONS (1)
  - Pemphigoid [Recovering/Resolving]
